FAERS Safety Report 11646539 (Version 2)
Quarter: 2016Q2

REPORT INFORMATION
  Report Type: Spontaneous
  Country: US (occurrence: US)
  Receive Date: 20151020
  Receipt Date: 20160429
  Transmission Date: 20160815
  Serious: No
  Sender: FDA-Public Use
  Company Number: US-ROCHE-1626200

PATIENT
  Sex: Female
  Weight: 72.64 kg

DRUGS (2)
  1. ESBRIET [Suspect]
     Active Substance: PIRFENIDONE
     Indication: IDIOPATHIC PULMONARY FIBROSIS
     Route: 048
     Dates: start: 20150708
  2. ESBRIET [Suspect]
     Active Substance: PIRFENIDONE
     Dosage: 2-3 CAPSULES BY MOUTH TWICE TO THREE TIMES A DAY
     Route: 048
     Dates: start: 20151019

REACTIONS (5)
  - Eating disorder [Unknown]
  - Abdominal pain [Unknown]
  - Drug dose omission [Unknown]
  - Pain [Unknown]
  - Nasopharyngitis [Unknown]
